FAERS Safety Report 8118784-8 (Version None)
Quarter: 2012Q1

REPORT INFORMATION
  Report Type: 
  Country: None (occurrence: None)
  Receive Date: 20120207
  Receipt Date: 20120202
  Transmission Date: 20120608
  Serious: Yes (Death)
  Sender: FDA-Public Use
  Company Number: US-CELGENEUS-163-21880-12011960

PATIENT
  Sex: Male

DRUGS (14)
  1. REVLIMID [Suspect]
     Indication: LYMPHOMA
     Dosage: 10 MILLIGRAM
     Route: 048
     Dates: start: 20111219
  2. FLAX OIL [Concomitant]
     Route: 065
  3. MAGNESIUM [Concomitant]
     Route: 065
  4. PHENERGAN [Concomitant]
     Route: 065
  5. VALTREX [Concomitant]
     Route: 065
  6. FLUCONAZOLE [Concomitant]
     Route: 065
  7. LORAZEPAM [Concomitant]
     Route: 065
  8. CO Q10 [Concomitant]
     Route: 065
  9. CYTOXAN [Concomitant]
     Route: 065
  10. CLONIDINE [Concomitant]
     Route: 065
  11. FLORA Q [Concomitant]
     Route: 065
  12. TRAMADOL HCL [Concomitant]
     Route: 065
  13. MORPHINE [Concomitant]
     Route: 065
  14. RITUXAN [Concomitant]
     Route: 065

REACTIONS (2)
  - SEPSIS [None]
  - LYMPHOMA [None]
